FAERS Safety Report 15053120 (Version 3)
Quarter: 2018Q4

REPORT INFORMATION
  Report Type: Spontaneous
  Country: US (occurrence: US)
  Receive Date: 20180622
  Receipt Date: 20181004
  Transmission Date: 20190204
  Serious: No
  Sender: FDA-Public Use
  Company Number: US-PFIZER INC-2018253071

PATIENT
  Age: 68 Year
  Sex: Female

DRUGS (1)
  1. IBRANCE [Suspect]
     Active Substance: PALBOCICLIB
     Dosage: 125 MG, CYCLIC (125 MG CAPSULE DAILY FOR 21 DAYS THEN 7 DAYS OFF)
     Route: 048

REACTIONS (5)
  - Nausea [Recovered/Resolved]
  - Peripheral swelling [Unknown]
  - Constipation [Recovered/Resolved]
  - Alopecia [Unknown]
  - Vomiting [Recovered/Resolved]
